FAERS Safety Report 11200004 (Version 1)
Quarter: 2015Q2

REPORT INFORMATION
  Report Type: Spontaneous
  Country: US (occurrence: US)
  Receive Date: 20150618
  Receipt Date: 20150618
  Transmission Date: 20150821
  Serious: No
  Sender: FDA-Public Use
  Company Number: US-TAKEDA-2015TUS000546

PATIENT
  Age: 8 Decade
  Sex: Male

DRUGS (1)
  1. ULORIC [Suspect]
     Active Substance: FEBUXOSTAT
     Indication: GOUT
     Dosage: 40 MG, QD
     Route: 048

REACTIONS (1)
  - Rash pruritic [Recovered/Resolved]
